FAERS Safety Report 6271431-2 (Version None)
Quarter: 2009Q3

REPORT INFORMATION
  Report Type: 
  Country: None (occurrence: None)
  Receive Date: 20090717
  Receipt Date: 20090707
  Transmission Date: 20100115
  Serious: Yes (Hospitalization, Other)
  Sender: FDA-Public Use
  Company Number: US-BAYER-200924125GPV

PATIENT
  Age: 85 Year
  Sex: Female

DRUGS (14)
  1. NAPROSYN [Suspect]
     Indication: DRUG USE FOR UNKNOWN INDICATION
  2. ASPIRIN [Suspect]
     Indication: DRUG USE FOR UNKNOWN INDICATION
  3. NIFEDIPINE [Suspect]
     Indication: DRUG USE FOR UNKNOWN INDICATION
  4. INDOMETHACIN [Suspect]
     Indication: DRUG USE FOR UNKNOWN INDICATION
  5. ELAVIL [Suspect]
     Indication: DRUG USE FOR UNKNOWN INDICATION
     Dosage: TAPERED AND WITHDRAWN
  6. BUSPAR [Suspect]
     Indication: DRUG USE FOR UNKNOWN INDICATION
  7. REMERON [Suspect]
     Indication: DRUG USE FOR UNKNOWN INDICATION
  8. LIBRAX [Suspect]
     Indication: DRUG USE FOR UNKNOWN INDICATION
     Dosage: TAPERED AND WITHDRAWN
  9. PERPHENAZINE [Suspect]
     Indication: DRUG USE FOR UNKNOWN INDICATION
     Dosage: TAPERED AND WITHDRAWN
  10. PRILOSEC [Suspect]
     Indication: DRUG USE FOR UNKNOWN INDICATION
  11. CARAFATE [Suspect]
     Indication: DRUG USE FOR UNKNOWN INDICATION
  12. DETROL [Suspect]
     Indication: DRUG USE FOR UNKNOWN INDICATION
  13. PROCARDIA XL [Suspect]
     Indication: DRUG USE FOR UNKNOWN INDICATION
     Dosage: CHANGED AS NSAIDS ALONG WITH ANTICHOLINERGICS, BLADDER RELAXANTS, AND CALCIUM CHANNEL BLOCKERS PRECI
  14. ZYVOX [Suspect]
     Indication: DRUG USE FOR UNKNOWN INDICATION

REACTIONS (10)
  - ASTHENIA [None]
  - CONFUSIONAL STATE [None]
  - DISORIENTATION [None]
  - DYSARTHRIA [None]
  - FACIAL PARESIS [None]
  - MENTAL STATUS CHANGES [None]
  - PYURIA [None]
  - RENAL FAILURE ACUTE [None]
  - URINARY RETENTION [None]
  - URINARY TRACT INFECTION [None]
